FAERS Safety Report 20841027 (Version 2)
Quarter: 2022Q2

REPORT INFORMATION
  Report Type: Report from Study
  Country: US (occurrence: US)
  Receive Date: 20220517
  Receipt Date: 20220523
  Transmission Date: 20220721
  Serious: Yes (Other)
  Sender: FDA-Public Use
  Company Number: US-JAZZ-2022-US-016525

PATIENT
  Sex: Female

DRUGS (1)
  1. XYWAV [Suspect]
     Active Substance: CALCIUM OXYBATE\MAGNESIUM OXYBATE\POTASSIUM OXYBATE\SODIUM OXYBATE
     Indication: Hypersomnia
     Dosage: 3 GRAM AS FIRST DOSE AND 2.5 GRAM AS SECOND DOSE
     Route: 048
     Dates: start: 20220512

REACTIONS (4)
  - Diplegia [Unknown]
  - Upper respiratory tract infection [Unknown]
  - Somnolence [Unknown]
  - Drug intolerance [Unknown]
